FAERS Safety Report 4378366-0 (Version None)
Quarter: 2004Q2

REPORT INFORMATION
  Report Type: 
  Country: None (occurrence: None)
  Receive Date: 20040616
  Receipt Date: 20040604
  Transmission Date: 20050107
  Serious: Yes (Other)
  Sender: FDA-Public Use
  Company Number: PHBS2004KR07469

PATIENT
  Sex: Female

DRUGS (2)
  1. GLEEVEC [Suspect]
     Indication: FIBROMATOSIS
     Dosage: 400 MG/D
     Route: 048
  2. GLEEVEC [Suspect]
     Dosage: 300 MG/D
     Route: 048

REACTIONS (3)
  - SURGERY [None]
  - WEIGHT DECREASED [None]
  - WEIGHT INCREASED [None]
